FAERS Safety Report 6709064-3 (Version None)
Quarter: 2010Q2

REPORT INFORMATION
  Report Type: 
  Country: None (occurrence: None)
  Receive Date: 20100429
  Receipt Date: 20100420
  Transmission Date: 20101027
  Serious: Yes (Hospitalization)
  Sender: FDA-Public Use
  Company Number: 569873

PATIENT
  Age: 4 Year
  Sex: Male

DRUGS (5)
  1. (METHOTREXATE) [Suspect]
     Indication: B PRECURSOR TYPE ACUTE LEUKAEMIA
     Dosage: INTRATHECAL
     Route: 037
  2. (VINCRISTINE SULFATE) [Suspect]
     Indication: B PRECURSOR TYPE ACUTE LEUKAEMIA
  3. (DEXAMETHASONE) [Suspect]
     Indication: B PRECURSOR TYPE ACUTE LEUKAEMIA
  4. DAUNORUBICIN HCL [Suspect]
     Indication: B PRECURSOR TYPE ACUTE LEUKAEMIA
  5. (PEG-ASPARAGINASE) [Suspect]
     Indication: B PRECURSOR TYPE ACUTE LEUKAEMIA

REACTIONS (5)
  - MUCOSAL INFLAMMATION [None]
  - OESOPHAGEAL CANDIDIASIS [None]
  - OESOPHAGEAL STENOSIS [None]
  - ORAL CANDIDIASIS [None]
  - WEIGHT DECREASED [None]
